FAERS Safety Report 8791011 (Version 5)
Quarter: 2013Q2

REPORT INFORMATION
  Report Type: Spontaneous
  Country: US (occurrence: None)
  Receive Date: 20120910
  Receipt Date: 20130408
  Transmission Date: 20140414
  Serious: Yes (Other)
  Sender: FDA-Public Use
  Company Number: ADR-2012-01652

PATIENT
  Sex: Female

DRUGS (1)
  1. LIORESAL INTRATHECAL (BACLOFEN INJECTION) 2000 MCG/ML [Suspect]
     Indication: MUSCLE SPASTICITY

REACTIONS (10)
  - Tremor [None]
  - Drug withdrawal syndrome [None]
  - Device failure [None]
  - Paraesthesia [None]
  - Medical device site reaction [None]
  - Haemorrhage [None]
  - No therapeutic response [None]
  - Muscle spasticity [None]
  - Muscle spasms [None]
  - Disease recurrence [None]
